FAERS Safety Report 9700725 (Version 1)
Quarter: 2013Q4

REPORT INFORMATION
  Report Type: Report from Study
  Country: US (occurrence: US)
  Receive Date: 20131121
  Receipt Date: 20131121
  Transmission Date: 20140711
  Serious: Yes (Other)
  Sender: FDA-Public Use
  Company Number: US-JNJFOC-20131108869

PATIENT
  Age: 72 Year
  Sex: Female
  Weight: 68.04 kg

DRUGS (14)
  1. REMICADE [Suspect]
     Indication: CROHN^S DISEASE
     Dosage: ABOUT THREE YEARS
     Route: 042
  2. LORTAB [Concomitant]
     Indication: PAIN
     Dosage: LONG TIME
     Route: 048
  3. CALCIUM [Concomitant]
     Indication: BLOOD CALCIUM DECREASED
     Route: 048
  4. POTASSIUM [Concomitant]
     Indication: BLOOD POTASSIUM DECREASED
     Dosage: FOUR IN MORNING AND THREE AT NIGHT??SINCE YEARS
     Route: 048
  5. CLONAZEPAM [Concomitant]
     Indication: NEUROPATHY PERIPHERAL
     Dosage: LONG TIME
     Route: 048
  6. NEXIUM [Concomitant]
     Indication: GASTRIC DISORDER
     Dosage: LONG TIME
     Route: 048
  7. INDAPAMIDE [Concomitant]
     Indication: DIURETIC THERAPY
     Dosage: LONG TIME
     Route: 048
  8. SYNTHROID [Concomitant]
     Indication: THYROID DISORDER
     Dosage: 100 MCG??LONG TIME
     Route: 048
  9. LEXAPRO [Concomitant]
     Indication: DEPRESSION
     Dosage: TWO OR THREE YEARS
     Route: 048
  10. MERCAPTOPURINE [Concomitant]
     Indication: CROHN^S DISEASE
     Dosage: FOR SIX YEARS
     Route: 048
  11. LISINOPRIL [Concomitant]
     Indication: HYPERTENSION
     Dosage: LONG TIME
     Route: 048
  12. HYOSCYAMINE SULFATE [Concomitant]
     Indication: MUSCLE SPASMS
     Dosage: ABOUT TWO YEARS
     Route: 048
  13. RISPERDAL [Concomitant]
     Indication: COLD SWEAT
     Dosage: ABOUT TWO YEARS AND??COLD SWEATS THAT BEGAN TWO OR THREE YEARS AGO,
     Route: 048
  14. HUMIRA [Concomitant]
     Route: 065

REACTIONS (5)
  - Umbilical hernia [Not Recovered/Not Resolved]
  - Abnormal loss of weight [Not Recovered/Not Resolved]
  - Alopecia [Not Recovered/Not Resolved]
  - Body height decreased [Not Recovered/Not Resolved]
  - Oropharyngeal pain [Not Recovered/Not Resolved]
